FAERS Safety Report 7276398 (Version 2)
Quarter: 2014Q2

REPORT INFORMATION
  Report Type: Report from Study
  Country: EG (occurrence: EG)
  Receive Date: 20100211
  Receipt Date: 20140507
  Transmission Date: 20141212
  Serious: Yes (Death, Life-Threatening, Hospitalization)
  Sender: FDA-Public Use
  Company Number: PHHO2010EG02020

PATIENT
  Sex: Female

DRUGS (2)
  1. ICL670A [Suspect]
     Indication: HAEMOSIDEROSIS
  2. DRUG THERAPY NOS [Concomitant]

REACTIONS (3)
  - Death [Fatal]
  - Cardiac arrest [Unknown]
  - Renal failure acute [Unknown]
